FAERS Safety Report 18502717 (Version 2)
Quarter: 2021Q1

REPORT INFORMATION
  Report Type: Report from Study
  Country: None (occurrence: BE)
  Receive Date: 20201113
  Receipt Date: 20210305
  Transmission Date: 20210419
  Serious: Yes (Life-Threatening)
  Sender: FDA-Public Use
  Company Number: BE-ABBVIE-19K-013-2906644-00

PATIENT
  Age: 82 Year
  Sex: Female
  Weight: 55 kg

DRUGS (9)
  1. DUODOPA [Suspect]
     Active Substance: CARBIDOPA\LEVODOPA
     Dosage: MD=1.4ML, CD=1.1ML/HR DURING 16HRS, ED=0.4ML
     Route: 050
     Dates: start: 201303, end: 20130315
  2. XANAX [Concomitant]
     Active Substance: ALPRAZOLAM
     Indication: PRODUCT USED FOR UNKNOWN INDICATION
  3. DUODOPA [Suspect]
     Active Substance: CARBIDOPA\LEVODOPA
     Dosage: MD=2ML, CD=1.8ML/HR DURING 16HRS, ED=0.8ML
     Route: 050
     Dates: start: 20191031, end: 20200513
  4. DUODOPA [Suspect]
     Active Substance: CARBIDOPA\LEVODOPA
     Dosage: MD=2ML, CD=1.6ML/HR DURING 16HRS, ED=0.8ML
     Route: 050
     Dates: start: 20190320, end: 20191031
  5. DUODOPA [Suspect]
     Active Substance: CARBIDOPA\LEVODOPA
     Dosage: MD=2ML, CD=2ML/HR DURING 16HRS, ED=0.8ML
     Route: 050
     Dates: start: 20200513, end: 20201109
  6. PAROXETINE. [Concomitant]
     Active Substance: PAROXETINE
     Indication: PRODUCT USED FOR UNKNOWN INDICATION
  7. DUODOPA [Suspect]
     Active Substance: CARBIDOPA\LEVODOPA
     Indication: PARKINSON^S DISEASE
     Dosage: UNKNOWN DOSAGES
     Route: 050
     Dates: start: 20130311, end: 201303
  8. DUODOPA [Suspect]
     Active Substance: CARBIDOPA\LEVODOPA
     Dosage: DOSES CONTINUOUSLY MONITORED AND ADAPTED
     Route: 050
     Dates: start: 20130315, end: 20190320
  9. DUODOPA [Suspect]
     Active Substance: CARBIDOPA\LEVODOPA
     Dosage: MD= 2.0 ML, CD= 2.0 ML/HR DURING 16HRS, ED= 1.0 ML
     Route: 050
     Dates: start: 20201109

REACTIONS (13)
  - Oxygen saturation decreased [Unknown]
  - Muscle rigidity [Recovering/Resolving]
  - General physical health deterioration [Not Recovered/Not Resolved]
  - Urinary tract infection [Unknown]
  - Tremor [Recovering/Resolving]
  - Parkinson^s disease [Recovering/Resolving]
  - Bronchitis [Unknown]
  - Stoma site infection [Recovering/Resolving]
  - Palliative care [Unknown]
  - Gait disturbance [Not Recovered/Not Resolved]
  - Dystonia [Recovering/Resolving]
  - On and off phenomenon [Unknown]
  - Adverse drug reaction [Unknown]
